FAERS Safety Report 26194518 (Version 1)
Quarter: 2025Q4

REPORT INFORMATION
  Report Type: Spontaneous
  Country: EU (occurrence: EU)
  Receive Date: 20251224
  Receipt Date: 20251224
  Transmission Date: 20260118
  Serious: Yes (Hospitalization, Other)
  Sender: RHYTHM PHARMACEUTICALS
  Company Number: EU-PPDUS-2024RHM000051

PATIENT

DRUGS (10)
  1. IMCIVREE [Suspect]
     Active Substance: SETMELANOTIDE
     Indication: Laurence-Moon-Bardet-Biedl syndrome
     Dosage: .5 MILLIGRAM, QD
     Route: 058
     Dates: start: 20231006, end: 20231020
  2. IMCIVREE [Suspect]
     Active Substance: SETMELANOTIDE
     Dosage: 1 MILLIGRAM, QD
     Route: 058
     Dates: start: 20231021, end: 20231108
  3. IMCIVREE [Suspect]
     Active Substance: SETMELANOTIDE
     Dosage: .5 MILLIGRAM, QD
     Route: 058
     Dates: start: 20231109, end: 20231210
  4. IMCIVREE [Suspect]
     Active Substance: SETMELANOTIDE
     Dosage: 1 MILLIGRAM, QD
     Route: 058
     Dates: start: 20231211
  5. IMCIVREE [Suspect]
     Active Substance: SETMELANOTIDE
     Dosage: 3 MILLIGRAM
     Route: 058
     Dates: start: 20251010
  6. AMLODIPINE\PERINDOPRIL [Concomitant]
     Active Substance: AMLODIPINE\PERINDOPRIL
     Indication: Hypertension
     Dosage: PERINDOPRIL 10 /AMLODIPINE 10
     Route: 065
     Dates: start: 2016
  7. ATORVASTATIN [Concomitant]
     Active Substance: ATORVASTATIN
     Indication: Dyslipidaemia
     Dosage: 80 MILLIGRAM
     Route: 065
     Dates: start: 202308
  8. DAPAGLIFLOZIN [Concomitant]
     Active Substance: DAPAGLIFLOZIN
     Indication: Renal failure
     Dosage: 10 MILLIGRAM
     Route: 065
     Dates: start: 2021
  9. TAMSULOSIN [Concomitant]
     Active Substance: TAMSULOSIN
     Indication: Benign prostatic hyperplasia
     Dosage: .4 MILLIGRAM
     Route: 065
     Dates: start: 2020
  10. FEBUXOSTAT [Concomitant]
     Active Substance: FEBUXOSTAT
     Indication: Hyperuricaemia
     Dosage: 80 MILLIGRAM
     Route: 065
     Dates: start: 2014

REACTIONS (5)
  - Superinfection [Unknown]
  - Limb injury [Unknown]
  - Abdominal pain [Recovered/Resolved]
  - Injection site pruritus [Recovered/Resolved]
  - Diarrhoea [Recovered/Resolved]

NARRATIVE: CASE EVENT DATE: 20231007
